FAERS Safety Report 9321212 (Version 1)
Quarter: 2013Q2

REPORT INFORMATION
  Report Type: Spontaneous
  Country: US (occurrence: None)
  Receive Date: 20130528
  Receipt Date: 20130528
  Transmission Date: 20140414
  Serious: Yes (Hospitalization)
  Sender: FDA-Public Use
  Company Number: 2012AP003238

PATIENT
  Age: 54 Year
  Sex: Male

DRUGS (1)
  1. FERRIPROX [Suspect]
     Indication: THALASSAEMIA BETA

REACTIONS (1)
  - Duodenal ulcer haemorrhage [None]
